FAERS Safety Report 19132069 (Version 2)
Quarter: 2021Q2

REPORT INFORMATION
  Report Type: Spontaneous
  Country: HR (occurrence: HR)
  Receive Date: 20210413
  Receipt Date: 20210617
  Transmission Date: 20210717
  Serious: Yes (Other)
  Sender: FDA-Public Use
  Company Number: HR-TEVA-2021-HR-1899278

PATIENT
  Age: 75 Year
  Sex: Male
  Weight: 120 kg

DRUGS (7)
  1. DUTASTERIDE/TAMSULOSIN [Suspect]
     Active Substance: DUTASTERIDE\TAMSULOSIN HYDROCHLORIDE
     Indication: BENIGN PROSTATIC HYPERPLASIA
     Dosage: 1 DF = 0,5 MG DUTASTERIDE + 0,4 MG TAMSULOSIN HYDROCHLORIDE:UNITDOSE:1DOSAGEFORM
     Route: 048
     Dates: start: 20201210, end: 20210320
  2. CARVELOL [Concomitant]
     Active Substance: CARVEDILOL
     Dosage: UNK
     Route: 048
  3. CO ARTICEL [Concomitant]
     Dosage: UNK
     Route: 048
  4. VILSPOX [Concomitant]
     Active Substance: METFORMIN HYDROCHLORIDE\VILDAGLIPTIN
     Dosage: UNK
     Route: 048
  5. DIUVER [Concomitant]
     Active Substance: TORSEMIDE
     Dosage: UNK
     Route: 048
  6. LERCANIL [Concomitant]
     Active Substance: LERCANIDIPINE HYDROCHLORIDE
     Dosage: UNK
     Route: 048
  7. MIRAPEXIN [Concomitant]
     Active Substance: PRAMIPEXOLE
     Dosage: UNK
     Route: 048

REACTIONS (1)
  - Bradycardia [Recovered/Resolved]

NARRATIVE: CASE EVENT DATE: 20201210
